FAERS Safety Report 7482711-7 (Version None)
Quarter: 2011Q2

REPORT INFORMATION
  Report Type: 
  Country: None (occurrence: None)
  Receive Date: 20110516
  Receipt Date: 20091125
  Transmission Date: 20111010
  Serious: Yes (Other)
  Sender: FDA-Public Use
  Company Number: PHHY2009DE68622

PATIENT
  Sex: Female

DRUGS (1)
  1. EXTAVIA [Suspect]
     Indication: MULTIPLE SCLEROSIS
     Route: 058
     Dates: start: 20091118

REACTIONS (5)
  - VISUAL ACUITY REDUCED [None]
  - PAIN IN EXTREMITY [None]
  - DIZZINESS [None]
  - INJECTION SITE PAIN [None]
  - OSTEOARTHRITIS [None]
